FAERS Safety Report 7747149-3 (Version None)
Quarter: 2011Q3

REPORT INFORMATION
  Report Type: 
  Country: None (occurrence: None)
  Receive Date: 20110907
  Receipt Date: 20110823
  Transmission Date: 20111222
  Serious: Yes (Life-Threatening, Other)
  Sender: FDA-Public Use
  Company Number: 2011S1000271

PATIENT
  Sex: Female

DRUGS (4)
  1. INOMAX [Suspect]
     Indication: OXYGEN SATURATION ABNORMAL
     Dosage: 40 PPM;CONT;INH, 20 PPM;CONT;INH, 40 PPM;CON;INH, 20 PPM;CON;INH
     Route: 039
     Dates: start: 20110819, end: 20110823
  2. INOMAX [Suspect]
     Indication: OXYGEN SATURATION ABNORMAL
     Dosage: 40 PPM;CONT;INH, 20 PPM;CONT;INH, 40 PPM;CON;INH, 20 PPM;CON;INH
     Route: 039
     Dates: start: 20110823, end: 20110823
  3. INOMAX [Suspect]
     Indication: OXYGEN SATURATION ABNORMAL
     Dosage: 40 PPM;CONT;INH, 20 PPM;CONT;INH, 40 PPM;CON;INH, 20 PPM;CON;INH
     Route: 039
     Dates: start: 20110823, end: 20110823
  4. INOMAX [Suspect]
     Indication: OXYGEN SATURATION ABNORMAL
     Dosage: 40 PPM;CONT;INH, 20 PPM;CONT;INH, 40 PPM;CON;INH, 20 PPM;CON;INH
     Route: 039
     Dates: start: 20110823

REACTIONS (3)
  - OXYGEN SATURATION DECREASED [None]
  - CARDIAC ARREST [None]
  - DEVICE MALFUNCTION [None]
